FAERS Safety Report 6907082-3 (Version None)
Quarter: 2010Q3

REPORT INFORMATION
  Report Type: 
  Country: None (occurrence: None)
  Receive Date: 20100804
  Receipt Date: 20080614
  Transmission Date: 20110219
  Serious: No
  Sender: FDA-Public Use
  Company Number: US-PFIZER INC-2008042639

PATIENT
  Sex: Male
  Weight: 80.9 kg

DRUGS (6)
  1. SELZENTRY [Suspect]
     Indication: HIV INFECTION
     Dosage: BID: EVERY DAY
     Route: 048
     Dates: start: 20071105
  2. NORVIR [Concomitant]
  3. ISENTRESS [Concomitant]
  4. PREZISTA [Concomitant]
  5. LOPID [Concomitant]
  6. ATENOLOL [Concomitant]

REACTIONS (6)
  - ARTHRALGIA [None]
  - BLOOD CREATINE PHOSPHOKINASE INCREASED [None]
  - BURNING SENSATION [None]
  - DEPRESSED MOOD [None]
  - MUSCULOSKELETAL STIFFNESS [None]
  - MYALGIA [None]
